FAERS Safety Report 8089114-5 (Version None)
Quarter: 2012Q1

REPORT INFORMATION
  Report Type: 
  Country: None (occurrence: None)
  Receive Date: 20120128
  Receipt Date: 20110708
  Transmission Date: 20120608
  Serious: No
  Sender: FDA-Public Use
  Company Number: US-ABBOTT-11P-163-0838167-00

PATIENT
  Sex: Male
  Weight: 68.1 kg

DRUGS (7)
  1. UNNAMED TOPICAL MEDICATION [Concomitant]
     Indication: PSORIASIS
  2. HUMIRA [Suspect]
     Indication: PSORIASIS
     Dates: start: 20100629, end: 20100629
  3. LIPITOR [Concomitant]
     Indication: BLOOD CHOLESTEROL INCREASED
  4. HUMIRA [Suspect]
     Dates: start: 20100711, end: 20100727
  5. MULTI-VITAMINS [Concomitant]
     Indication: VITAMIN SUPPLEMENTATION
  6. ZYRTEC [Concomitant]
     Indication: HYPERSENSITIVITY
     Dosage: ALTERNATED MONTHLY WITH CLARITIN
  7. CLARITIN [Concomitant]
     Indication: HYPERSENSITIVITY
     Dosage: ALTERNATED MONTHLY WITH ZYRTEC

REACTIONS (6)
  - BURNING SENSATION [None]
  - MYALGIA [None]
  - PAIN [None]
  - FEELING HOT [None]
  - HYPOAESTHESIA [None]
  - PARAESTHESIA [None]
